FAERS Safety Report 23946473 (Version 5)
Quarter: 2025Q2

REPORT INFORMATION
  Report Type: Report from Study
  Country: CA (occurrence: CA)
  Receive Date: 20240606
  Receipt Date: 20250414
  Transmission Date: 20250716
  Serious: Yes (Hospitalization, Other)
  Sender: GLAXOSMITHKLINE
  Company Number: CA-GLAXOSMITHKLINE-CA2023155472

PATIENT

DRUGS (1)
  1. MEPOLIZUMAB [Suspect]
     Active Substance: MEPOLIZUMAB
     Indication: Asthma
     Dosage: 100 MG, Q4W
     Route: 058
     Dates: start: 20231016

REACTIONS (21)
  - Pain in extremity [Unknown]
  - Wound complication [Unknown]
  - Cellulitis [Not Recovered/Not Resolved]
  - Viral infection [Not Recovered/Not Resolved]
  - Haemoptysis [Unknown]
  - Gastric haemorrhage [Not Recovered/Not Resolved]
  - Intestinal obstruction [Unknown]
  - Diabetes mellitus [Unknown]
  - Dysphonia [Unknown]
  - Aphonia [Unknown]
  - Illness [Unknown]
  - Insomnia [Unknown]
  - Head discomfort [Unknown]
  - Nasal congestion [Unknown]
  - Abdominal discomfort [Unknown]
  - Feeling abnormal [Unknown]
  - Arthritis [Unknown]
  - Amnesia [Unknown]
  - Disease recurrence [Unknown]
  - Dyspnoea exertional [Unknown]
  - Inappropriate schedule of product administration [Unknown]

NARRATIVE: CASE EVENT DATE: 20231201
